FAERS Safety Report 5801989-6 (Version None)
Quarter: 2008Q3

REPORT INFORMATION
  Report Type: 
  Country: None (occurrence: None)
  Receive Date: 20080703
  Receipt Date: 20080625
  Transmission Date: 20090109
  Serious: Yes (Hospitalization)
  Sender: FDA-Public Use
  Company Number: 2008SP012613

PATIENT
  Age: 52 Year
  Sex: Male
  Weight: 83 kg

DRUGS (10)
  1. TEMODAR [Suspect]
     Indication: GLIOBLASTOMA MULTIFORME
     Dosage: 105 MG; QD; PO
     Route: 048
     Dates: start: 20070924, end: 20080609
  2. BEVACIZUMAB [Suspect]
     Indication: GLIOBLASTOMA MULTIFORME
     Dosage: 842 MG; IV; 873 MG; IV; 853 MG; IV; 840 MG; IV; 828 MG; IV
     Route: 042
     Dates: start: 20070924, end: 20071118
  3. BEVACIZUMAB [Suspect]
     Indication: GLIOBLASTOMA MULTIFORME
     Dosage: 842 MG; IV; 873 MG; IV; 853 MG; IV; 840 MG; IV; 828 MG; IV
     Route: 042
     Dates: start: 20071119, end: 20080210
  4. BEVACIZUMAB [Suspect]
     Indication: GLIOBLASTOMA MULTIFORME
     Dosage: 842 MG; IV; 873 MG; IV; 853 MG; IV; 840 MG; IV; 828 MG; IV
     Route: 042
     Dates: start: 20080211, end: 20080309
  5. BEVACIZUMAB [Suspect]
     Indication: GLIOBLASTOMA MULTIFORME
     Dosage: 842 MG; IV; 873 MG; IV; 853 MG; IV; 840 MG; IV; 828 MG; IV
     Route: 042
     Dates: start: 20080310, end: 20080505
  6. BEVACIZUMAB [Suspect]
     Indication: GLIOBLASTOMA MULTIFORME
     Dosage: 842 MG; IV; 873 MG; IV; 853 MG; IV; 840 MG; IV; 828 MG; IV
     Route: 042
     Dates: start: 20080505, end: 20080602
  7. PERCOCET [Concomitant]
  8. CONCERTA [Concomitant]
  9. ACIPHEX [Concomitant]
  10. BONIVA [Concomitant]

REACTIONS (17)
  - ATRIOVENTRICULAR BLOCK FIRST DEGREE [None]
  - BLOOD PRESSURE SYSTOLIC INCREASED [None]
  - BODY TEMPERATURE DECREASED [None]
  - CEREBRAL INFARCTION [None]
  - CEREBRAL ISCHAEMIA [None]
  - COGNITIVE DISORDER [None]
  - CONSTIPATION [None]
  - DYSARTHRIA [None]
  - HEADACHE [None]
  - HEART VALVE INCOMPETENCE [None]
  - LEFT VENTRICULAR HYPERTROPHY [None]
  - MOTOR DYSFUNCTION [None]
  - NO THERAPEUTIC RESPONSE [None]
  - PAIN [None]
  - SINUS TACHYCARDIA [None]
  - SUPRAVENTRICULAR EXTRASYSTOLES [None]
  - VENTRICULAR EXTRASYSTOLES [None]
